FAERS Safety Report 5898399-2 (Version None)
Quarter: 2008Q3

REPORT INFORMATION
  Report Type: 
  Country: None (occurrence: None)
  Receive Date: 20080925
  Receipt Date: 20071017
  Transmission Date: 20090109
  Serious: No
  Sender: FDA-Public Use
  Company Number: A0688264A

PATIENT
  Age: 59 Year
  Sex: Male

DRUGS (4)
  1. WELLBUTRIN XL [Suspect]
     Indication: PHOBIA
     Dosage: 300MCG PER DAY
     Route: 048
     Dates: start: 20070925
  2. LEXAPRO [Suspect]
     Dosage: 5MG PER DAY
     Dates: start: 20070801, end: 20070925
  3. LOTREL [Concomitant]
  4. CRESTOR [Concomitant]

REACTIONS (5)
  - DEPRESSION [None]
  - INSOMNIA [None]
  - LIBIDO DECREASED [None]
  - MOOD ALTERED [None]
  - TREMOR [None]
